FAERS Safety Report 8800647 (Version 1)
Quarter: 2012Q4

REPORT INFORMATION
  Report Type: 
  Country: CN (occurrence: CN)
  Receive Date: 20120921
  Receipt Date: 20120921
  Transmission Date: 20130627
  Serious: Yes (Other)
  Sender: FDA-Public Use
  Company Number: CN-BAYER-2012-097977

PATIENT
  Age: 89 Year
  Sex: Female

DRUGS (3)
  1. AVELOX [Suspect]
     Indication: LUNG INFECTION
     Dosage: 0.4 g, QD
     Dates: start: 20110106, end: 20110108
  2. AVELOX [Suspect]
     Indication: LUNG INFECTION
     Dosage: 0.4 g, QD
     Dates: start: 20110106, end: 20110108
  3. AVELOX [Suspect]
     Indication: LUNG INFECTION
     Dosage: 0.4 g, QD
     Dates: start: 20110108, end: 20110110

REACTIONS (1)
  - Delirium [Recovering/Resolving]
